FAERS Safety Report 4773732-3 (Version None)
Quarter: 2005Q3

REPORT INFORMATION
  Report Type: 
  Country: None (occurrence: None)
  Receive Date: 20050920
  Receipt Date: 20050907
  Transmission Date: 20060218
  Serious: Yes (Hospitalization)
  Sender: FDA-Public Use
  Company Number: US-GLAXOSMITHKLINE-A0573443A

PATIENT
  Age: 59 Year
  Sex: Female

DRUGS (7)
  1. TUMS PEPPERMINT [Suspect]
     Indication: ABDOMINAL PAIN UPPER
     Route: 048
     Dates: start: 20020101
  2. TUMS ULTRA TABLETS, SPEARMINT [Suspect]
     Indication: ABDOMINAL PAIN UPPER
     Route: 048
     Dates: start: 20020101
  3. ARTHRITIS MEDICATION [Concomitant]
  4. ATENOLOL [Concomitant]
  5. HYDROCHLOROTHIAZIDE [Concomitant]
  6. PEPCID AC [Concomitant]
  7. NORVASC [Concomitant]

REACTIONS (9)
  - BLOOD IRON DECREASED [None]
  - BLOOD PRESSURE INCREASED [None]
  - INCOHERENT [None]
  - JOINT DEPOSIT [None]
  - LOSS OF CONSCIOUSNESS [None]
  - MUSCLE ATROPHY [None]
  - NEPHROCALCINOSIS [None]
  - RENAL FAILURE [None]
  - WALKING AID USER [None]
